FAERS Safety Report 8584071-7 (Version None)
Quarter: 2012Q3

REPORT INFORMATION
  Report Type: 
  Country: None (occurrence: None)
  Receive Date: 20120810
  Receipt Date: 20120726
  Transmission Date: 20120928
  Serious: No
  Sender: FDA-Public Use
  Company Number: US-009507513-1207USA011718

PATIENT

DRUGS (4)
  1. ZETIA [Concomitant]
  2. LIPITOR [Concomitant]
     Dosage: UNK
  3. PLAVIX [Concomitant]
  4. JANUMET [Suspect]
     Indication: TYPE 2 DIABETES MELLITUS
     Dosage: 50/500 MILLIGRAMS
     Route: 048
     Dates: start: 20120726

REACTIONS (1)
  - HAEMATOCHEZIA [None]
